FAERS Safety Report 10188161 (Version 1)
Quarter: 2014Q2

REPORT INFORMATION
  Report Type: Spontaneous
  Country: GB (occurrence: None)
  Receive Date: 20140520
  Receipt Date: 20140520
  Transmission Date: 20141212
  Serious: Yes (Other)
  Sender: FDA-Public Use
  Company Number: AUR-APL-2014-05769

PATIENT
  Age: 83 Year
  Sex: Male
  Weight: 66.22 kg

DRUGS (9)
  1. QUETIAPINE (QUETIAPINE) [Suspect]
     Indication: AGITATION
     Route: 048
     Dates: start: 20140414, end: 20140421
  2. AMLODIPINE (AMLODIPINE) [Concomitant]
  3. ASPIRIN (ACETYLSALICYLIC ACID) [Concomitant]
  4. CITALOPRAM (CITALOPRAM) [Concomitant]
  5. LORAZEPAM (LORAZEPAM) [Concomitant]
  6. LOSARTAN POTASSIUM (LOSARTAN POTASSIUM) [Concomitant]
  7. MEMANTINE HYDROCHLORIDE (MEMANTINE HYDROCHLORIDE) [Concomitant]
  8. RISPERIDONE (RISPERIDONE) [Concomitant]
  9. ZOPICLONE (ZOPICLONE) [Concomitant]

REACTIONS (6)
  - Seizure like phenomena [None]
  - Somnolence [None]
  - Restlessness [None]
  - Dyskinesia [None]
  - Bruxism [None]
  - Staring [None]
